FAERS Safety Report 10244389 (Version 1)
Quarter: 2014Q1

REPORT INFORMATION
  Report Type: Spontaneous
  Country: US (occurrence: None)
  Receive Date: 20140306
  Receipt Date: 20140306
  Transmission Date: 20141002
  Serious: Yes (Other)
  Sender: FDA-Public Use
  Company Number: 163-21880-13101363

PATIENT
  Age: 74 Year
  Sex: Female
  Weight: 68 kg

DRUGS (8)
  1. REVLIMID (LENALIDOMIDE) (25 MILLIGRAM, CAPSULES) [Suspect]
     Indication: PLASMA CELL MYELOMA
     Route: 048
     Dates: start: 200910
  2. BUFFERED ASPIRIN (ACETYLSALICYLIC ACID) (UNKNOWN) [Concomitant]
  3. NEURONTIN (GABAPENTIN) (UNKNOWN) [Concomitant]
  4. VITAMIN B6 (PYRIDOXINE HYDROCHLORIDE) (UNKNOWN) [Concomitant]
  5. MICARDIS (TELMISARTAN) (UNKNOWN) [Concomitant]
  6. HCTZ/TRIAMTERENE (DYAZIDE) (UNKNOWN) [Concomitant]
  7. CALCIUM 600 + D (LEKOVIT CA) (UNKNOWN) [Concomitant]
  8. DEXAMETHASONE (DEXAMETHASONE) (UNKNOWN) [Concomitant]

REACTIONS (1)
  - Deep vein thrombosis [None]
